FAERS Safety Report 4876272-6 (Version None)
Quarter: 2005Q4

REPORT INFORMATION
  Report Type: 
  Country: None (occurrence: None)
  Receive Date: 20051206
  Receipt Date: 20050810
  Transmission Date: 20060501
  Serious: No
  Sender: FDA-Public Use
  Company Number: USA0508105109

PATIENT
  Age: 49 Year
  Sex: Female

DRUGS (9)
  1. CYMBALTA [Suspect]
     Indication: DEPRESSION
     Dosage: 30 MG DAY
     Dates: start: 20050803
  2. SEROQUEL [Concomitant]
  3. NEURONTIN [Concomitant]
  4. THYROID PILL [Concomitant]
  5. KLONOPIN [Concomitant]
  6. PHENOBARBITAL [Concomitant]
  7. PLAQUENIL [Concomitant]
  8. EXTRA STRENGTH ACETAMINOPHEN (EXTRA STRENGTH ACETAMINOPHEN) [Concomitant]
  9. ALKA-SELTZER (ACETYLSALICYCLIC ACID) [Concomitant]

REACTIONS (1)
  - MENORRHAGIA [None]
